FAERS Safety Report 4945217-2 (Version None)
Quarter: 2006Q1

REPORT INFORMATION
  Report Type: 
  Country: None (occurrence: None)
  Receive Date: 20060316
  Receipt Date: 20060307
  Transmission Date: 20060701
  Serious: Yes (Other)
  Sender: FDA-Public Use
  Company Number: PHBS2006JP03603

PATIENT
  Sex: Male

DRUGS (3)
  1. DANTRIUM [Suspect]
     Indication: NEUROLEPTIC MALIGNANT SYNDROME
     Route: 041
  2. CARBENIN [Suspect]
     Indication: NEUROLEPTIC MALIGNANT SYNDROME
     Route: 041
  3. PARLODEL [Suspect]
     Indication: NEUROLEPTIC MALIGNANT SYNDROME
     Dosage: 7.5 MG/DAY
     Route: 048

REACTIONS (5)
  - ALANINE AMINOTRANSFERASE INCREASED [None]
  - ASPARTATE AMINOTRANSFERASE INCREASED [None]
  - BLOOD BILIRUBIN INCREASED [None]
  - HEPATIC FUNCTION ABNORMAL [None]
  - JAUNDICE [None]
